FAERS Safety Report 5930852-5 (Version None)
Quarter: 2008Q4

REPORT INFORMATION
  Report Type: 
  Country: None (occurrence: None)
  Receive Date: 20081002
  Receipt Date: 20080730
  Transmission Date: 20090506
  Serious: Yes (Disabling, Other)
  Sender: FDA-Public Use
  Company Number: 2008-0016611

PATIENT
  Age: 41 Year
  Sex: Male

DRUGS (11)
  1. TRUVADA [Suspect]
     Indication: ACQUIRED IMMUNODEFICIENCY SYNDROME
     Dosage: 1 DOSAGE FORMS, 1 IN 2 D, ORAL ; 1 DOSAGE FORMS, 1 IN 1 D, ORAL
     Route: 048
     Dates: start: 20080401, end: 20080502
  2. TRUVADA [Suspect]
     Indication: ACQUIRED IMMUNODEFICIENCY SYNDROME
     Dosage: 1 DOSAGE FORMS, 1 IN 2 D, ORAL ; 1 DOSAGE FORMS, 1 IN 1 D, ORAL
     Route: 048
     Dates: start: 20080502, end: 20080508
  3. AMBISOME [Suspect]
     Dosage: SEE IMAGE
     Route: 042
     Dates: start: 20080401, end: 20080417
  4. AMBISOME [Suspect]
     Dosage: SEE IMAGE
     Route: 042
     Dates: start: 20080501, end: 20080505
  5. AMBISOME [Suspect]
     Dosage: SEE IMAGE
     Route: 042
     Dates: start: 20080508
  6. FLUCYTOSINE (FLUCYTOSINE) [Concomitant]
  7. ATAZANAVIR SULFATE [Concomitant]
  8. RITONAVIR (RITONAVIR) [Concomitant]
  9. AZITHROMYCIN [Concomitant]
  10. DAPSONE [Concomitant]
  11. VALGANCICLOVIR HCL [Concomitant]

REACTIONS (1)
  - RENAL FAILURE ACUTE [None]
